FAERS Safety Report 4314150-1 (Version None)
Quarter: 2004Q1

REPORT INFORMATION
  Report Type: 
  Country: None (occurrence: None)
  Receive Date: 20040309
  Receipt Date: 20040302
  Transmission Date: 20041129
  Serious: Yes (Hospitalization)
  Sender: FDA-Public Use
  Company Number: 200410863FR

PATIENT
  Age: 68 Year
  Sex: Female
  Weight: 76 kg

DRUGS (3)
  1. FUROSEMIDE [Suspect]
     Indication: ESSENTIAL HYPERTENSION
     Route: 048
     Dates: end: 20040205
  2. VOLTAREN [Suspect]
     Indication: OSTEOARTHRITIS
     Dates: end: 20040203
  3. RENITEC [Suspect]
     Route: 048
     Dates: end: 20040205

REACTIONS (2)
  - POSTOPERATIVE RENAL FAILURE [None]
  - RENAL FAILURE ACUTE [None]
